FAERS Safety Report 5471427-4 (Version None)
Quarter: 2007Q3

REPORT INFORMATION
  Report Type: 
  Country: None (occurrence: None)
  Receive Date: 20070928
  Receipt Date: 20061013
  Transmission Date: 20080115
  Serious: No
  Sender: FDA-Public Use
  Company Number: US-BRISTOL-MYERS SQUIBB COMPANY-13540869

PATIENT
  Age: 73 Year
  Sex: Male
  Weight: 102 kg

DRUGS (11)
  1. DEFINITY [Suspect]
     Indication: ECHOCARDIOGRAM
     Route: 040
     Dates: start: 20061013
  2. DONEPEZIL HCL [Concomitant]
  3. SIMVASTATIN [Concomitant]
  4. CYCLOBENZAPRINE HCL [Concomitant]
  5. TEMAZEPAM [Concomitant]
  6. DIGOXIN [Concomitant]
  7. LISINOPRIL [Concomitant]
  8. SPIRONOLACTONE [Concomitant]
  9. OMEPRAZOLE [Concomitant]
  10. NITROFURANTOIN [Concomitant]
  11. UREA [Concomitant]

REACTIONS (1)
  - BACK PAIN [None]
